FAERS Safety Report 4432734-7 (Version None)
Quarter: 2004Q3

REPORT INFORMATION
  Report Type: 
  Country: None (occurrence: None)
  Receive Date: 20040820
  Receipt Date: 20040816
  Transmission Date: 20050211
  Serious: Yes (Hospitalization)
  Sender: FDA-Public Use
  Company Number: 200410435BYL

PATIENT
  Age: 62 Year
  Sex: Female

DRUGS (11)
  1. ASPIRIN [Suspect]
     Indication: CEREBRAL INFARCTION
     Dosage: 100 MG, QD, ORAL
     Route: 048
     Dates: start: 20040803, end: 20040809
  2. PROSCOPE [Concomitant]
  3. TANATRIL ^TANABE^ [Concomitant]
  4. DEPAKENE [Concomitant]
  5. BLOPRESS [Concomitant]
  6. NORVASC [Concomitant]
  7. AMOBAN [Concomitant]
  8. DEPAS [Concomitant]
  9. HALOTHANE [Concomitant]
  10. RADICUT [Concomitant]
  11. PERDIPINE [Concomitant]

REACTIONS (1)
  - STEVENS-JOHNSON SYNDROME [None]
